FAERS Safety Report 13703788 (Version 2)
Quarter: 2017Q3

REPORT INFORMATION
  Report Type: Spontaneous
  Country: LB (occurrence: LB)
  Receive Date: 20170629
  Receipt Date: 20170712
  Transmission Date: 20171127
  Serious: Yes (Other)
  Sender: FDA-Public Use
  Company Number: LB-IMPAX LABORATORIES, INC-2017-IPXL-01897

PATIENT
  Age: 35 Year
  Sex: Female

DRUGS (2)
  1. ADRENACLICK [Suspect]
     Active Substance: EPINEPHRINE
     Dosage: 2 MG, INTRAMYOMAL INECTION, 1 ONLY
     Route: 050
  2. ADRENACLICK [Suspect]
     Active Substance: EPINEPHRINE
     Indication: HAEMOSTASIS
     Dosage: 1 MG DILUTED IN 60 ML NS, INTRAMYOMAL INECTION, 1 ONLY
     Route: 050

REACTIONS (1)
  - Stress cardiomyopathy [Recovering/Resolving]
